FAERS Safety Report 10018051 (Version 2)
Quarter: 2014Q3

REPORT INFORMATION
  Report Type: Spontaneous
  Country: US (occurrence: US)
  Receive Date: 20140318
  Receipt Date: 20140702
  Transmission Date: 20150326
  Serious: Yes (Death, Life-Threatening, Hospitalization, Other)
  Sender: FDA-Public Use
  Company Number: US-009507513-1403USA007855

PATIENT
  Sex: Male
  Weight: 73.16 kg

DRUGS (6)
  1. JANUVIA [Suspect]
     Active Substance: SITAGLIPTIN PHOSPHATE
     Indication: TYPE 2 DIABETES MELLITUS
     Dosage: 100 MG, QD
     Route: 048
     Dates: start: 20070710, end: 20080720
  2. JANUMET [Suspect]
     Active Substance: METFORMIN HYDROCHLORIDE\SITAGLIPTIN PHOSPHATE
     Dosage: 50-1000MG, BID
     Route: 048
     Dates: end: 20080201
  3. BYETTA [Suspect]
     Active Substance: EXENATIDE
     Indication: TYPE 2 DIABETES MELLITUS
     Dosage: 10 MICROGRAM, BID
     Route: 048
     Dates: start: 2006, end: 2006
  4. JANUMET [Suspect]
     Active Substance: METFORMIN HYDROCHLORIDE\SITAGLIPTIN PHOSPHATE
     Indication: TYPE 2 DIABETES MELLITUS
     Dosage: 50-500 MG, QD
     Route: 048
     Dates: start: 20070510, end: 20070517
  5. JANUMET [Suspect]
     Active Substance: METFORMIN HYDROCHLORIDE\SITAGLIPTIN PHOSPHATE
     Dosage: 50-500 MG, BID
     Route: 048
     Dates: start: 20070517
  6. JANUMET [Suspect]
     Active Substance: METFORMIN HYDROCHLORIDE\SITAGLIPTIN PHOSPHATE
     Dosage: 50-500MG, BID
     Route: 048
     Dates: start: 20070927, end: 20080201

REACTIONS (37)
  - Fracture treatment [Fatal]
  - Hallucination [Recovered/Resolved]
  - Osteoarthritis [Unknown]
  - Spinal compression fracture [Unknown]
  - Benign prostatic hyperplasia [Unknown]
  - Duodenal sphincterotomy [Unknown]
  - Biliary sphincterotomy [Unknown]
  - Adenocarcinoma pancreas [Unknown]
  - Hip fracture [Fatal]
  - Coronary artery bypass [Unknown]
  - Atrial fibrillation [Recovered/Resolved]
  - Carotid artery disease [Unknown]
  - Sepsis [Unknown]
  - Metastases to lymph nodes [Unknown]
  - Chest wall operation [Unknown]
  - Hyperlipidaemia [Unknown]
  - Nephrolithiasis [Unknown]
  - Pancreaticoduodenectomy [Unknown]
  - Arthritis infective [Fatal]
  - Confusional state [Recovered/Resolved]
  - Thermal burn [Unknown]
  - Coronary artery disease [Unknown]
  - Transient ischaemic attack [Unknown]
  - Dementia Alzheimer^s type [Fatal]
  - Carotid endarterectomy [Unknown]
  - Sleep apnoea syndrome [Unknown]
  - Failure to thrive [Fatal]
  - Malignant melanoma [Unknown]
  - Peripheral vascular disorder [Unknown]
  - Bile duct stenosis [Unknown]
  - Bile duct stent insertion [Unknown]
  - Hypertension [Unknown]
  - Pyrexia [Unknown]
  - Chest pain [Unknown]
  - Device malfunction [Unknown]
  - Sinus bradycardia [Unknown]
  - Gastrooesophageal reflux disease [Unknown]

NARRATIVE: CASE EVENT DATE: 20080424
